FAERS Safety Report 25551231 (Version 1)
Quarter: 2025Q3

REPORT INFORMATION
  Report Type: Report from Study
  Country: CN (occurrence: CN)
  Receive Date: 20250714
  Receipt Date: 20250714
  Transmission Date: 20251021
  Serious: Yes (Hospitalization, Other)
  Sender: ELI LILLY AND COMPANY
  Company Number: CN-ELI_LILLY_AND_COMPANY-CN202410013771

PATIENT
  Age: 56 Year
  Sex: Female

DRUGS (3)
  1. RETEVMO [Suspect]
     Active Substance: SELPERCATINIB
     Indication: Lung neoplasm malignant
     Dosage: 240 MG, DAILY (160 MG IN THE MORNING/80 MG IN THE EVENING)
     Route: 048
     Dates: start: 20240817
  2. RETEVMO [Suspect]
     Active Substance: SELPERCATINIB
     Dosage: 160 MG, BID
     Route: 048
     Dates: start: 202409, end: 20241018
  3. RETEVMO [Suspect]
     Active Substance: SELPERCATINIB
     Dosage: 240 MG, DAILY (160 MG IN THE MORNING/80 MG IN THE EVENING)
     Route: 048
     Dates: end: 20250702

REACTIONS (4)
  - Liver function test abnormal [Recovering/Resolving]
  - Headache [Not Recovered/Not Resolved]
  - Malignant neoplasm progression [Unknown]
  - Oedema [Unknown]

NARRATIVE: CASE EVENT DATE: 20240928
